FAERS Safety Report 24190472 (Version 1)
Quarter: 2024Q3

REPORT INFORMATION
  Report Type: Spontaneous
  Country: US (occurrence: US)
  Receive Date: 20240808
  Receipt Date: 20240808
  Transmission Date: 20241017
  Serious: No
  Sender: TARO
  Company Number: US-TARO PHARMACEUTICALS USA INC.-2024TAR00872

PATIENT

DRUGS (1)
  1. ADAPALENE [Suspect]
     Active Substance: ADAPALENE
     Indication: Acne
     Dosage: UNK, 2 OR MORE TIMES A DAY, PEA
     Route: 065
     Dates: start: 202403, end: 20240615

REACTIONS (1)
  - Seborrhoea [Recovering/Resolving]

NARRATIVE: CASE EVENT DATE: 20240501
